FAERS Safety Report 10265257 (Version 1)
Quarter: 2014Q2

REPORT INFORMATION
  Report Type: Report from Study
  Country: KR (occurrence: KR)
  Receive Date: 20140627
  Receipt Date: 20140627
  Transmission Date: 20141212
  Serious: Yes (Hospitalization)
  Sender: FDA-Public Use
  Company Number: KR-OTSUKA-JP-2014-14757

PATIENT
  Age: 65 Year
  Sex: 0
  Weight: 72 kg

DRUGS (8)
  1. BLINDED ASPIRIN [Suspect]
     Indication: CEREBRAL INFARCTION
     Dosage: UNK
     Dates: start: 20121004, end: 20121014
  2. BLINDED PLETAAL [Suspect]
     Indication: CEREBRAL INFARCTION
     Dosage: UNK
     Dates: start: 20121004, end: 20121014
  3. NICETILE [Concomitant]
     Dosage: 500 MG MILLIGRAM(S), BID
     Route: 048
     Dates: start: 20121003, end: 20121014
  4. GASTER D [Concomitant]
     Dosage: 20 MG MILLIGRAM(S), BID
     Route: 048
     Dates: start: 20121003, end: 20121014
  5. BENFOREX [Concomitant]
     Dosage: 1 DF DOSAGE FORM, BID
     Route: 048
     Dates: start: 20121003, end: 20121014
  6. FOLIC ACID [Concomitant]
     Dosage: 1 MG MILLIGRAM(S), BID
     Route: 048
     Dates: start: 20121003, end: 20121014
  7. TEGRETOL [Concomitant]
     Dosage: 200 MG MILLIGRAM(S), BID
     Route: 048
     Dates: start: 20121003, end: 20121014
  8. EBASTEL [Concomitant]
     Dosage: 1 DF DOSAGE FORM, QD
     Route: 048
     Dates: start: 20121003, end: 20121014

REACTIONS (1)
  - Immune thrombocytopenic purpura [Unknown]
